FAERS Safety Report 4338171-8 (Version None)
Quarter: 2004Q1

REPORT INFORMATION
  Report Type: 
  Country: None (occurrence: None)
  Receive Date: 20040329
  Receipt Date: 20040209
  Transmission Date: 20041129
  Serious: No
  Sender: FDA-Public Use
  Company Number: USA040258941

PATIENT
  Sex: Male
  Weight: 55 kg

DRUGS (2)
  1. STRATTERA [Suspect]
     Dosage: 120 MG/DAY
     Dates: start: 20030918
  2. LEXAPRO [Concomitant]

REACTIONS (1)
  - PRESCRIBED OVERDOSE [None]
